FAERS Safety Report 4643333-6 (Version None)
Quarter: 2005Q2

REPORT INFORMATION
  Report Type: 
  Country: None (occurrence: None)
  Receive Date: 20050421
  Receipt Date: 20050318
  Transmission Date: 20051028
  Serious: Yes (Death, Hospitalization)
  Sender: FDA-Public Use
  Company Number: 2005046925

PATIENT
  Age: 81 Year
  Sex: Male
  Weight: 81.6475 kg

DRUGS (6)
  1. XALATAN [Suspect]
     Indication: GLAUCOMA
     Dosage: 2 DROP (1 IN 1 D)
  2. MACRODANTIN [Suspect]
     Indication: ILL-DEFINED DISORDER
     Dates: end: 20050101
  3. ASCORBIC ACID/ COPPER/ RETINOL/ TOCOPHEROL/ ZINC (ASCORBIC ACID, COPPE [Concomitant]
  4. OCUVITE (ASCORBIC ACID, RETINOL, TOCOPHEROL) [Concomitant]
  5. DIGOXIN [Concomitant]
  6. COSOPT [Concomitant]

REACTIONS (9)
  - ARTHRALGIA [None]
  - BLADDER CANCER [None]
  - BLOOD CREATININE INCREASED [None]
  - DIALYSIS [None]
  - HEPATIC ENZYME INCREASED [None]
  - MYALGIA [None]
  - PRURITUS GENERALISED [None]
  - RASH [None]
  - RENAL FAILURE [None]
